FAERS Safety Report 25019637 (Version 1)
Quarter: 2025Q1

REPORT INFORMATION
  Report Type: Spontaneous
  Country: NL (occurrence: NL)
  Receive Date: 20250227
  Receipt Date: 20250227
  Transmission Date: 20250408
  Serious: Yes (Other)
  Sender: DOUGLAS PHARMACEUTICALS
  Company Number: IN-DOUGLAS PHARMACEUTICALS US-2025TSM00016

PATIENT
  Age: 41 Year
  Sex: Male

DRUGS (3)
  1. CLOZAPINE [Suspect]
     Active Substance: CLOZAPINE
     Indication: Schizoaffective disorder
  2. VALPROATE SODIUM [Concomitant]
     Active Substance: VALPROATE SODIUM
  3. VALPROATE SODIUM [Concomitant]
     Active Substance: VALPROATE SODIUM

REACTIONS (1)
  - Asterixis [Recovered/Resolved]
